FAERS Safety Report 6888778-9 (Version None)
Quarter: 2010Q3

REPORT INFORMATION
  Report Type: 
  Country: None (occurrence: None)
  Receive Date: 20100730
  Receipt Date: 20071108
  Transmission Date: 20110219
  Serious: No
  Sender: FDA-Public Use
  Company Number: US-PFIZER INC-2007075676

PATIENT
  Sex: Male
  Weight: 65.77 kg

DRUGS (2)
  1. LIPITOR [Suspect]
     Indication: BLOOD CHOLESTEROL
     Dates: start: 20070905
  2. NORVASC [Concomitant]
     Indication: HYPERTENSION
     Dates: start: 19970101

REACTIONS (2)
  - RHINORRHOEA [None]
  - SNEEZING [None]
